FAERS Safety Report 7337466-3 (Version None)
Quarter: 2011Q1

REPORT INFORMATION
  Report Type: 
  Country: None (occurrence: None)
  Receive Date: 20110308
  Receipt Date: 20110302
  Transmission Date: 20110831
  Serious: Yes (Other)
  Sender: FDA-Public Use
  Company Number: AR-BRISTOL-MYERS SQUIBB COMPANY-15468515

PATIENT
  Age: 61 Year
  Sex: Female

DRUGS (7)
  1. DIUREX [Concomitant]
  2. ONGLYZA [Suspect]
     Indication: TYPE 2 DIABETES MELLITUS
     Dosage: 5MG ON FASTING.
  3. CLOPIDOGREL BISULFATE [Concomitant]
  4. CARVEDILOL [Concomitant]
     Dosage: ISOBLOC
  5. TRITACE [Concomitant]
  6. ATORVASTATIN [Concomitant]
  7. METFORMIN HCL [Suspect]

REACTIONS (5)
  - ABDOMINAL PAIN [None]
  - HYPERTHYROIDISM [None]
  - DYSPEPSIA [None]
  - DIARRHOEA [None]
  - MALAISE [None]
